FAERS Safety Report 11494200 (Version 1)
Quarter: 2015Q3

REPORT INFORMATION
  Report Type: Spontaneous
  Country: US (occurrence: US)
  Receive Date: 20150911
  Receipt Date: 20150911
  Transmission Date: 20151125
  Serious: No
  Sender: FDA-Public Use
  Company Number: US-ROCHE-786371

PATIENT
  Sex: Female

DRUGS (2)
  1. RIBAVIRIN. [Suspect]
     Active Substance: RIBAVIRIN
     Indication: CHRONIC HEPATITIS C
     Route: 048
  2. PEGASYS [Suspect]
     Active Substance: PEGINTERFERON ALFA-2A
     Indication: CHRONIC HEPATITIS C
     Route: 058

REACTIONS (17)
  - Pain [Unknown]
  - Insomnia [Unknown]
  - Ear pain [Unknown]
  - Back pain [Recovered/Resolved]
  - Memory impairment [Unknown]
  - White blood cell count decreased [Unknown]
  - Anxiety disorder [Unknown]
  - Vulvovaginal pruritus [Unknown]
  - Unevaluable event [Unknown]
  - Dyskinesia [Unknown]
  - Candida infection [Unknown]
  - Malaise [Unknown]
  - Vulvovaginal swelling [Unknown]
  - Pain in extremity [Unknown]
  - Pruritus [Unknown]
  - Abdominal discomfort [Unknown]
  - Renal pain [Recovered/Resolved]
